FAERS Safety Report 22595895 (Version 1)
Quarter: 2023Q2

REPORT INFORMATION
  Report Type: Spontaneous
  Country: US (occurrence: US)
  Receive Date: 20230613
  Receipt Date: 20230613
  Transmission Date: 20230722
  Serious: No
  Sender: FDA-Public Use
  Company Number: US-CARA THERAPEUTICS, INC.-2023-00080-US

PATIENT
  Sex: Male

DRUGS (1)
  1. KORSUVA [Suspect]
     Active Substance: DIFELIKEFALIN ACETATE
     Indication: Product used for unknown indication
     Dosage: UNK
     Route: 042

REACTIONS (6)
  - Shunt stenosis [Unknown]
  - Dialysis related complication [Unknown]
  - Fatigue [Unknown]
  - Product storage error [Unknown]
  - Product administration error [Unknown]
  - Somnolence [Unknown]

NARRATIVE: CASE EVENT DATE: 20221001
